FAERS Safety Report 8909191 (Version 1)
Quarter: 2012Q4

REPORT INFORMATION
  Report Type: Spontaneous
  Country: US (occurrence: None)
  Receive Date: 20121113
  Receipt Date: 20121113
  Transmission Date: 20130627
  Serious: No
  Sender: FDA-Public Use
  Company Number: None

PATIENT
  Age: 56 Year
  Sex: Male

DRUGS (3)
  1. AUGMENTIN [Suspect]
     Indication: CHRONIC SINUSITIS
     Dates: start: 20110314, end: 20110330
  2. ZITHROMAX [Suspect]
     Indication: SINUSITIS
     Dates: start: 20110117, end: 20110123
  3. ZITHROMAX [Suspect]
     Indication: SINUSITIS
     Dates: start: 20110308, end: 20110312

REACTIONS (2)
  - Drug-induced liver injury [None]
  - Jaundice [None]
